FAERS Safety Report 7137988-4 (Version None)
Quarter: 2010Q4

REPORT INFORMATION
  Report Type: 
  Country: None (occurrence: None)
  Receive Date: 20101103
  Receipt Date: 20100201
  Transmission Date: 20110411
  Serious: Yes (Other)
  Sender: FDA-Public Use
  Company Number: US-WYE-H13404210

PATIENT
  Age: 69 Year
  Sex: Male
  Weight: 77.18 kg

DRUGS (11)
  1. EFFEXOR XR [Suspect]
     Indication: ANXIETY
     Dosage: UNKNOWN DOSE FROM UNSPECIFIED DATE; THEN  INCREASED TO 75 MG DAILY ON AN UNKNOWN DATE, ORAL
     Route: 048
  2. METOPROLOL SUCCINATE [Concomitant]
  3. TRICOR [Concomitant]
  4. LIPITOR [Concomitant]
  5. METFORMIN HCL [Concomitant]
  6. TESTOSTERONE [Concomitant]
  7. LISINOPRIL [Concomitant]
  8. NIASPAN [Concomitant]
  9. ASPIRIN [Concomitant]
  10. LORAZEPAM [Concomitant]
  11. AMBIEN [Concomitant]

REACTIONS (2)
  - CLONUS [None]
  - MUSCLE TWITCHING [None]
